FAERS Safety Report 8067875-9 (Version None)
Quarter: 2012Q1

REPORT INFORMATION
  Report Type: 
  Country: None (occurrence: None)
  Receive Date: 20120124
  Receipt Date: 20120123
  Transmission Date: 20120608
  Serious: Yes (Other)
  Sender: FDA-Public Use
  Company Number: CO-ABBOTT-12P-036-0896398-00

PATIENT
  Sex: Female
  Weight: 64 kg

DRUGS (6)
  1. CAPTOPRIL [Concomitant]
     Indication: HYPERTENSION
     Route: 048
     Dates: start: 19950101
  2. SEVOFLURANE [Suspect]
     Indication: INDUCTION OF ANAESTHESIA
     Route: 055
     Dates: start: 20120117, end: 20120117
  3. HYDROCHLOROTHIAZIDE [Concomitant]
     Indication: HYPERTENSION
     Route: 048
     Dates: start: 19900101
  4. METFORMIN HCL [Concomitant]
     Indication: DIABETES MELLITUS
     Route: 048
     Dates: start: 19950101
  5. OMEPRAZOLE [Concomitant]
     Indication: GASTRITIS
     Route: 048
     Dates: end: 20120101
  6. SEVOFLURANE [Suspect]
     Indication: MAINTENANCE OF ANAESTHESIA

REACTIONS (1)
  - HYPERTENSIVE CRISIS [None]
